FAERS Safety Report 19086300 (Version 1)
Quarter: 2021Q2

REPORT INFORMATION
  Report Type: Spontaneous
  Country: US (occurrence: US)
  Receive Date: 20210401
  Receipt Date: 20210401
  Transmission Date: 20210717
  Serious: Yes (Life-Threatening, Hospitalization)
  Sender: FDA-Public Use
  Company Number: None

PATIENT
  Age: 82 Year
  Sex: Male
  Weight: 65.9 kg

DRUGS (12)
  1. BAMLANIVIMAB. [Suspect]
     Active Substance: BAMLANIVIMAB
     Indication: COVID-19
     Dosage: ?          OTHER FREQUENCY:ONCE;?
     Route: 042
     Dates: start: 20210328, end: 20210328
  2. HEPARIN 5000U SUBQ TID [Concomitant]
     Dates: start: 20210329
  3. ATORVASTASTIN 40MG PO QD [Concomitant]
     Dates: start: 20210328
  4. ISOSORBIDE MONONITRATE 120MG PO QD [Concomitant]
     Dates: start: 20210330
  5. POTASSIUM PHOSPHATE 15MMOL IV X1 [Concomitant]
     Dates: start: 20210329
  6. LABETOLOL 200MG PO BID [Concomitant]
     Dates: start: 20210328
  7. LOPERAMIDE 2MG PO PRN [Concomitant]
     Dates: start: 20210329
  8. ACETAMINOPHEN 650MG PO PRN Q6HRS [Concomitant]
     Dates: start: 20210328
  9. ASPIRIN 81MG PO QD [Concomitant]
     Dates: start: 20210329
  10. IBUPROFEN 600MG PO QD X 1 [Concomitant]
     Dates: start: 20210329
  11. ONDANSETRON 4MG IV X 1 [Concomitant]
     Dates: start: 20210329
  12. BREO ELLIPTA 200?25MCG 1 PUFF QD [Concomitant]
     Dates: start: 20210329

REACTIONS (5)
  - Aphasia [None]
  - Unresponsive to stimuli [None]
  - Blood pressure decreased [None]
  - Cerebrovascular accident [None]
  - Carotid artery stenosis [None]

NARRATIVE: CASE EVENT DATE: 20210330
